FAERS Safety Report 18165916 (Version 1)
Quarter: 2020Q3

REPORT INFORMATION
  Report Type: Spontaneous
  Country: US (occurrence: US)
  Receive Date: 20200818
  Receipt Date: 20200818
  Transmission Date: 20201103
  Serious: Yes (Hospitalization, Other)
  Sender: FDA-Public Use
  Company Number: US-OTSUKA-12343752

PATIENT
  Age: 13 Year
  Sex: Male

DRUGS (2)
  1. ABILIFY [Suspect]
     Active Substance: ARIPIPRAZOLE
     Indication: SCHIZOAFFECTIVE DISORDER
     Dosage: 60 MG, QD
     Route: 048
  2. FLUOXETINE [Interacting]
     Active Substance: FLUOXETINE HYDROCHLORIDE
     Indication: PRODUCT USED FOR UNKNOWN INDICATION
     Dosage: 60 MG, QD
     Route: 065

REACTIONS (9)
  - Blunted affect [Recovering/Resolving]
  - Hallucination, visual [Unknown]
  - Prescribed overdose [Unknown]
  - Sluggishness [Unknown]
  - Product use in unapproved indication [Unknown]
  - Hypoacusis [Recovering/Resolving]
  - Psychotic disorder [Unknown]
  - Suicide attempt [Unknown]
  - Drug interaction [Unknown]
